FAERS Safety Report 15321929 (Version 1)
Quarter: 2018Q3

REPORT INFORMATION
  Report Type: Spontaneous
  Country: JP (occurrence: JP)
  Receive Date: 20180827
  Receipt Date: 20180827
  Transmission Date: 20181010
  Serious: Yes (Other)
  Sender: FDA-Public Use
  Company Number: JP-PFIZER INC-2018335057

PATIENT

DRUGS (1)
  1. SOLU?CORTEF [Suspect]
     Active Substance: HYDROCORTISONE SODIUM SUCCINATE
     Dosage: UNK

REACTIONS (2)
  - Product use in unapproved indication [Unknown]
  - Chronic obstructive pulmonary disease [Unknown]
